FAERS Safety Report 9888095 (Version 1)
Quarter: 2014Q1

REPORT INFORMATION
  Report Type: Spontaneous
  Country: US (occurrence: US)
  Receive Date: 20140211
  Receipt Date: 20140211
  Transmission Date: 20141002
  Serious: No
  Sender: FDA-Public Use
  Company Number: US-BAUSCH-BL-2013-003878

PATIENT
  Age: 59 Year
  Sex: Female

DRUGS (1)
  1. SULFACETAMIDE SODIUM OPHTHALMIC SOLUTION USP 10% [Suspect]
     Indication: CONJUNCTIVITIS
     Dosage: DROP; OPHTHALMIC
     Route: 047
     Dates: start: 201302, end: 201302

REACTIONS (3)
  - Eye irritation [Recovered/Resolved]
  - Eye pruritus [Recovered/Resolved]
  - Ocular hyperaemia [Recovered/Resolved]
